FAERS Safety Report 14151036 (Version 1)
Quarter: 2017Q4

REPORT INFORMATION
  Report Type: Spontaneous
  Country: CN (occurrence: CN)
  Receive Date: 20171102
  Receipt Date: 20171102
  Transmission Date: 20180321
  Serious: Yes (Other)
  Sender: FDA-Public Use
  Company Number: CN-ROCHE-2017032

PATIENT
  Age: 74 Year
  Sex: Male

DRUGS (2)
  1. RANIBIZUMAB. [Suspect]
     Active Substance: RANIBIZUMAB
     Route: 050
     Dates: start: 20171019
  2. RANIBIZUMAB. [Suspect]
     Active Substance: RANIBIZUMAB
     Indication: OEDEMA
     Dosage: UNK
     Route: 050

REACTIONS (8)
  - Anterior chamber disorder [Unknown]
  - Mydriasis [Unknown]
  - Vitreous opacities [Unknown]
  - Product use in unapproved indication [Unknown]
  - Corneal disorder [Unknown]
  - Eyelid pain [Unknown]
  - Visual acuity reduced [Unknown]
  - Endophthalmitis [Unknown]

NARRATIVE: CASE EVENT DATE: 20171021
